FAERS Safety Report 6735998-X (Version None)
Quarter: 2010Q2

REPORT INFORMATION
  Report Type: 
  Country: None (occurrence: None)
  Receive Date: 20100521
  Receipt Date: 20100512
  Transmission Date: 20101027
  Serious: Yes (Other)
  Sender: FDA-Public Use
  Company Number: GB-ELI_LILLY_AND_COMPANY-GB201005003501

PATIENT
  Sex: Female

DRUGS (6)
  1. BYETTA [Suspect]
     Dosage: 10 UG, 2/D
     Route: 065
  2. RAMIPRIL [Concomitant]
     Dosage: UNK, UNKNOWN
     Route: 065
  3. SIMVASTATIN [Concomitant]
     Dosage: UNK, UNKNOWN
     Route: 065
  4. AMLODIPINE [Concomitant]
     Dosage: UNK, UNKNOWN
     Route: 065
  5. ASPIRIN [Concomitant]
     Dosage: UNK, UNKNOWN
     Route: 065
  6. ORLISTAT [Concomitant]
     Dosage: UNK, UNKNOWN
     Route: 065

REACTIONS (1)
  - BREAST CANCER [None]
